FAERS Safety Report 7705933-6 (Version None)
Quarter: 2011Q3

REPORT INFORMATION
  Report Type: 
  Country: None (occurrence: None)
  Receive Date: 20110824
  Receipt Date: 20110822
  Transmission Date: 20111222
  Serious: Yes (Other)
  Sender: FDA-Public Use
  Company Number: US-PFIZER INC-2011194014

PATIENT
  Sex: Female

DRUGS (9)
  1. LISINOPRIL [Concomitant]
     Dosage: UNK
  2. PRADAXA [Concomitant]
     Dosage: UNK, 2X/DAY
  3. CALCIUM CARBONATE [Concomitant]
     Dosage: UNK
  4. MIRALAX [Concomitant]
     Dosage: UNK
  5. LOVAZA [Concomitant]
     Dosage: UNK
  6. POTASSIUM [Concomitant]
     Dosage: UNK
  7. ACETYLSALICYLIC ACID [Concomitant]
     Dosage: 81 MG, UNK
  8. BUMEX [Concomitant]
     Dosage: UNK
  9. ESTRING [Suspect]
     Indication: VULVOVAGINAL DRYNESS
     Dosage: 2 MG, EVERY 3 MONTHS
     Route: 067
     Dates: start: 19990101

REACTIONS (1)
  - BREAST CYST [None]
